FAERS Safety Report 14416204 (Version 1)
Quarter: 2018Q1

REPORT INFORMATION
  Report Type: Spontaneous
  Country: US (occurrence: US)
  Receive Date: 20180122
  Receipt Date: 20180122
  Transmission Date: 20180509
  Serious: Yes (Hospitalization)
  Sender: FDA-Public Use
  Company Number: US-AUROBINDO-AUR-APL-2018-002446

PATIENT
  Age: 13 Year
  Sex: Male

DRUGS (2)
  1. ROPIVACAINE HYDROCHLORIDE INJECTION USP 0.2% [Suspect]
     Active Substance: ROPIVACAINE HYDROCHLORIDE
     Dosage: 0.2% INFUSION AT A RATE OF 6 ML/HOUR
  2. ROPIVACAINE HYDROCHLORIDE INJECTION USP 0.2% [Suspect]
     Active Substance: ROPIVACAINE HYDROCHLORIDE
     Indication: GENERAL ANAESTHESIA
     Dosage: 20ML OF 0.2%

REACTIONS (4)
  - Conjunctival hyperaemia [Recovered/Resolved]
  - Eyelid ptosis [Recovered/Resolved]
  - Horner^s syndrome [Recovered/Resolved]
  - Miosis [Recovered/Resolved]
